FAERS Safety Report 6015258-5 (Version None)
Quarter: 2008Q4

REPORT INFORMATION
  Report Type: 
  Country: None (occurrence: None)
  Receive Date: 20081219
  Receipt Date: 20081219
  Transmission Date: 20090506
  Serious: Yes (Hospitalization)
  Sender: FDA-Public Use
  Company Number: None

PATIENT
  Age: 32 Year
  Sex: Female
  Weight: 71.2147 kg

DRUGS (3)
  1. SEROQUEL XR [Suspect]
     Indication: BIPOLAR DISORDER
     Dosage: 2 TABS QD PO OR
     Route: 048
     Dates: start: 20081208
  2. DEPAKOTE ER [Suspect]
     Indication: BIPOLAR DISORDER
     Dosage: 2 TABS QD PO
     Route: 048
     Dates: start: 20081208
  3. ALEVE [Concomitant]

REACTIONS (1)
  - INCORRECT DOSE ADMINISTERED [None]
